FAERS Safety Report 6007550-5 (Version None)
Quarter: 2008Q4

REPORT INFORMATION
  Report Type: 
  Country: None (occurrence: None)
  Receive Date: 20081217
  Receipt Date: 20080506
  Transmission Date: 20090506
  Serious: No
  Sender: FDA-Public Use
  Company Number: US-ASTRAZENECA-2008UW09380

PATIENT
  Age: 79 Year
  Sex: Female

DRUGS (4)
  1. CRESTOR [Suspect]
     Indication: HYPERCHOLESTEROLAEMIA
     Route: 048
     Dates: start: 20071101
  2. PROTONIX [Concomitant]
  3. LEVOXYL [Concomitant]
  4. VITAMINS [Concomitant]

REACTIONS (1)
  - DYSPEPSIA [None]
